FAERS Safety Report 7437894-1 (Version None)
Quarter: 2011Q2

REPORT INFORMATION
  Report Type: 
  Country: None (occurrence: None)
  Receive Date: 20110426
  Receipt Date: 20110420
  Transmission Date: 20111010
  Serious: Yes (Hospitalization)
  Sender: FDA-Public Use
  Company Number: B0712406A

PATIENT
  Age: 54 Year
  Sex: Female
  Weight: 111.4 kg

DRUGS (2)
  1. AVANDIA [Suspect]
     Route: 048
  2. AVANDAMET [Suspect]
     Route: 048
     Dates: start: 20060101

REACTIONS (3)
  - HYPERTENSION [None]
  - FLUID RETENTION [None]
  - CHEST PAIN [None]
